FAERS Safety Report 18255679 (Version 2)
Quarter: 2020Q4

REPORT INFORMATION
  Report Type: Report from Study
  Country: ES (occurrence: ES)
  Receive Date: 20200910
  Receipt Date: 20201123
  Transmission Date: 20210113
  Serious: Yes (Hospitalization)
  Sender: FDA-Public Use
  Company Number: ES-BAXTER-2020BAX018247

PATIENT
  Age: 50 Year
  Sex: Male
  Weight: 108 kg

DRUGS (26)
  1. FLUDARABINE [Suspect]
     Active Substance: FLUDARABINE PHOSPHATE
     Indication: PLASMA CELL MYELOMA
     Dosage: INJECTION FOR INFUSION, LYMPHODEPLETING CHEMOTHERAPY
     Route: 042
     Dates: start: 20200430, end: 20200502
  2. FUROSEMIDE. [Concomitant]
     Active Substance: FUROSEMIDE
     Route: 042
     Dates: start: 20200508, end: 20200513
  3. TOCILIZUMAB. [Concomitant]
     Active Substance: TOCILIZUMAB
     Indication: CYTOKINE RELEASE SYNDROME
     Route: 042
     Dates: start: 20200509, end: 20200509
  4. FILGRASTIM [Concomitant]
     Active Substance: FILGRASTIM
     Indication: NEUTROPENIA
     Route: 058
     Dates: start: 20200525, end: 20200525
  5. OMEPRAZOLE. [Concomitant]
     Active Substance: OMEPRAZOLE
     Indication: PROPHYLAXIS
     Route: 048
  6. VANCOMYCIN [Concomitant]
     Active Substance: VANCOMYCIN
     Route: 042
     Dates: start: 20200510, end: 20200510
  7. METAMIZOLE [Concomitant]
     Active Substance: METAMIZOLE
     Indication: CYTOKINE RELEASE SYNDROME
     Dosage: PRN
     Route: 048
     Dates: start: 202005, end: 20200509
  8. MEROPENEM. [Concomitant]
     Active Substance: MEROPENEM
     Indication: PRODUCT USED FOR UNKNOWN INDICATION
     Route: 042
     Dates: start: 20200509, end: 20200513
  9. LORAZEPAM. [Concomitant]
     Active Substance: LORAZEPAM
     Indication: INFECTION PROPHYLAXIS
     Route: 048
     Dates: start: 20200504
  10. NYSTATIN. [Concomitant]
     Active Substance: NYSTATIN
     Indication: ANTIFUNGAL PROPHYLAXIS
     Route: 048
     Dates: start: 20200509, end: 20200510
  11. LEVOFLOXACIN. [Concomitant]
     Active Substance: LEVOFLOXACIN
     Indication: INFECTION PROPHYLAXIS
     Route: 048
     Dates: start: 20200514
  12. VANCOMYCIN [Concomitant]
     Active Substance: VANCOMYCIN
     Indication: CYTOKINE RELEASE SYNDROME
     Route: 042
     Dates: start: 20200508, end: 20200508
  13. VANCOMYCIN [Concomitant]
     Active Substance: VANCOMYCIN
     Route: 042
     Dates: start: 20200510, end: 20200511
  14. METAMIZOLE [Concomitant]
     Active Substance: METAMIZOLE
     Dosage: PRN
     Route: 042
     Dates: start: 20200509, end: 20200509
  15. FILGRASTIM [Concomitant]
     Active Substance: FILGRASTIM
     Route: 058
     Dates: start: 20200602, end: 20200604
  16. DEXCHLORPHENIRAMINE [Concomitant]
     Active Substance: DEXCHLORPHENIRAMINE
     Indication: PROPHYLAXIS
     Route: 042
     Dates: start: 20200509, end: 20200509
  17. FUROSEMIDE. [Concomitant]
     Active Substance: FUROSEMIDE
     Indication: PROPHYLAXIS
     Route: 048
     Dates: end: 202005
  18. VANCOMYCIN [Concomitant]
     Active Substance: VANCOMYCIN
     Route: 042
     Dates: start: 20200507, end: 20200509
  19. KETOROLAC [Concomitant]
     Active Substance: KETOROLAC TROMETHAMINE
     Indication: CYTOKINE RELEASE SYNDROME
     Dosage: PRN
     Route: 042
     Dates: start: 202005, end: 20200509
  20. FLUCONAZOLE. [Concomitant]
     Active Substance: FLUCONAZOLE
     Indication: ANTIFUNGAL PROPHYLAXIS
     Route: 048
     Dates: start: 20200509, end: 20200510
  21. POTASSIUM [Concomitant]
     Active Substance: POTASSIUM
     Indication: PROPHYLAXIS
     Dosage: TABLETS, 3 TABLET
     Route: 048
     Dates: start: 20200507, end: 20200513
  22. ONDANSETRON [Concomitant]
     Active Substance: ONDANSETRON
     Indication: PRODUCT USED FOR UNKNOWN INDICATION
     Dosage: PRN
     Route: 065
  23. GENOXAL [Suspect]
     Active Substance: CYCLOPHOSPHAMIDE
     Indication: PLASMA CELL MYELOMA
     Dosage: INJECTION FOR INFUSION, LYMPHODEPLETING CHEMOTHERAPY
     Route: 042
     Dates: start: 20200430, end: 20200502
  24. VALACICLOVIR [Concomitant]
     Active Substance: VALACYCLOVIR HYDROCHLORIDE
     Indication: ANTIVIRAL PROPHYLAXIS
     Route: 048
  25. PANTOPRAZOLE [Concomitant]
     Active Substance: PANTOPRAZOLE
     Indication: PROPHYLAXIS
     Route: 048
     Dates: start: 20200507
  26. IBUPROFEN. [Concomitant]
     Active Substance: IBUPROFEN
     Indication: CYTOKINE RELEASE SYNDROME
     Dosage: PRN
     Route: 048
     Dates: start: 20200510, end: 20200510

REACTIONS (1)
  - Subdural haematoma [Recovered/Resolved]

NARRATIVE: CASE EVENT DATE: 20200608
